FAERS Safety Report 4688845-4 (Version None)
Quarter: 2005Q2

REPORT INFORMATION
  Report Type: 
  Country: None (occurrence: None)
  Receive Date: 20050613
  Receipt Date: 20050604
  Transmission Date: 20051028
  Serious: Yes (Other)
  Sender: FDA-Public Use
  Company Number: GB-GLAXOSMITHKLINE-B0383503A

PATIENT
  Age: 63 Year
  Sex: Male
  Weight: 76 kg

DRUGS (1)
  1. AUGMENTIN '125' [Suspect]
     Indication: WOUND INFECTION
     Dosage: 1UNIT THREE TIMES PER DAY
     Route: 048
     Dates: start: 20050312, end: 20050319

REACTIONS (7)
  - ANOREXIA [None]
  - CHROMATURIA [None]
  - FAECES PALE [None]
  - HEPATITIS [None]
  - JAUNDICE [None]
  - LIVER FUNCTION TEST ABNORMAL [None]
  - MALAISE [None]
